FAERS Safety Report 12875469 (Version 4)
Quarter: 2017Q2

REPORT INFORMATION
  Report Type: Report from Study
  Country: US (occurrence: US)
  Receive Date: 20161024
  Receipt Date: 20170410
  Transmission Date: 20170830
  Serious: Yes (Hospitalization)
  Sender: FDA-Public Use
  Company Number: US-BRISTOL-MYERS SQUIBB COMPANY-BMS-2016-087461

PATIENT
  Age: 69 Year
  Sex: Male
  Weight: 87.8 kg

DRUGS (1)
  1. BLINDED NIVOLUMAB [Suspect]
     Active Substance: NIVOLUMAB
     Indication: METASTATIC MALIGNANT MELANOMA
     Dosage: 200 ML, UNK
     Route: 042
     Dates: start: 20160930, end: 20160930

REACTIONS (1)
  - Diplopia [Recovered/Resolved]

NARRATIVE: CASE EVENT DATE: 20161014
